FAERS Safety Report 7911260-4 (Version None)
Quarter: 2011Q4

REPORT INFORMATION
  Report Type: 
  Country: None (occurrence: None)
  Receive Date: 20111109
  Receipt Date: 20111103
  Transmission Date: 20120403
  Serious: Yes (Other)
  Sender: FDA-Public Use
  Company Number: A0951859A

PATIENT
  Age: 52 Year
  Sex: Female

DRUGS (1)
  1. DIPHENHYDRAMINE CITRATE + PARACETAMOL (FORMULATION UNKNOWN) (DIPHENHYD [Suspect]
     Indication: INTERVERTEBRAL DISC DISPLACEMENT

REACTIONS (3)
  - PRODUCT QUALITY ISSUE [None]
  - PRODUCT PACKAGING QUANTITY ISSUE [None]
  - DEPENDENCE [None]
